FAERS Safety Report 4603112-2 (Version None)
Quarter: 2005Q1

REPORT INFORMATION
  Report Type: 
  Country: None (occurrence: None)
  Receive Date: 20050309
  Receipt Date: 20050228
  Transmission Date: 20050727
  Serious: Yes (Life-Threatening, Hospitalization, Other)
  Sender: FDA-Public Use
  Company Number: US-GLAXOSMITHKLINE-A0547508A

PATIENT
  Age: 34 Year
  Sex: Female
  Weight: 47 kg

DRUGS (2)
  1. GOODY'S EXTRA STRENGTH HEADACHE POWDER [Suspect]
     Indication: TOOTHACHE
     Route: 048
     Dates: start: 19970101
  2. ZOLOFT [Concomitant]
     Indication: DEPRESSION
     Route: 048

REACTIONS (14)
  - ASTHENIA [None]
  - BRONCHITIS [None]
  - CARDIAC ARREST [None]
  - CONVULSION [None]
  - DEPENDENCE [None]
  - DYSURIA [None]
  - GASTRIC ULCER PERFORATION [None]
  - HAEMATEMESIS [None]
  - INTENTIONAL MISUSE [None]
  - LOSS OF CONSCIOUSNESS [None]
  - OVERDOSE [None]
  - SHOCK [None]
  - SYNCOPE [None]
  - TINNITUS [None]
